FAERS Safety Report 12675977 (Version 1)
Quarter: 2016Q3

REPORT INFORMATION
  Report Type: Spontaneous
  Country: US (occurrence: None)
  Receive Date: 20160822
  Receipt Date: 20160822
  Transmission Date: 20161109
  Serious: Yes (Hospitalization)
  Sender: FDA-Public Use
  Company Number: None

PATIENT
  Age: 29 Day
  Sex: Male
  Weight: 4.26 kg

DRUGS (2)
  1. FUROSEMIDE, 10 MG [Suspect]
     Active Substance: FUROSEMIDE
     Indication: PERICARDIAL EFFUSION
     Dosage: 2 OUNCE(S)  ONCE A DAY TAKEN BY MOUTH
     Route: 048
     Dates: start: 20160818
  2. FUROSEMIDE, 10 MG [Suspect]
     Active Substance: FUROSEMIDE
     Indication: PLEURAL EFFUSION
     Dosage: 2 OUNCE(S)  ONCE A DAY TAKEN BY MOUTH
     Route: 048
     Dates: start: 20160818

REACTIONS (5)
  - Pallor [None]
  - Incorrect dose administered [None]
  - Drug dispensing error [None]
  - Lethargy [None]
  - Accidental overdose [None]

NARRATIVE: CASE EVENT DATE: 20160818
